FAERS Safety Report 19072976 (Version 1)
Quarter: 2021Q1

REPORT INFORMATION
  Report Type: Spontaneous
  Country: US (occurrence: US)
  Receive Date: 20210330
  Receipt Date: 20210330
  Transmission Date: 20210420
  Serious: No
  Sender: FDA-Public Use
  Company Number: None

PATIENT

DRUGS (1)
  1. BAMLANIVIMAB AND ETESEVIMAB USE FOR COVID?19 UNDER EUA [Suspect]
     Active Substance: BAMLANIVIMAB\ETESEVIMAB

REACTIONS (1)
  - Product administration error [None]
